FAERS Safety Report 10949866 (Version 5)
Quarter: 2015Q2

REPORT INFORMATION
  Report Type: Spontaneous
  Country: US (occurrence: US)
  Receive Date: 20150324
  Receipt Date: 20150610
  Transmission Date: 20150821
  Serious: Yes (Other)
  Sender: FDA-Public Use
  Company Number: US-PFIZER INC-2015098890

PATIENT
  Age: 77 Year
  Sex: Male
  Weight: 71 kg

DRUGS (6)
  1. CALCITRIOL. [Concomitant]
     Active Substance: CALCITRIOL
     Indication: THYROID DISORDER
     Dosage: 0.25 MCG, DAILY
     Dates: start: 2014
  2. BUMETANIDE. [Concomitant]
     Active Substance: BUMETANIDE
     Indication: DIURETIC THERAPY
     Dosage: 2 MG, 2X/DAY
  3. CALCITRIOL. [Concomitant]
     Active Substance: CALCITRIOL
     Dosage: 0.5 MCG, DAILY
     Dates: start: 2014
  4. REVATIO [Suspect]
     Active Substance: SILDENAFIL CITRATE
     Indication: CARDIAC DISORDER
     Dosage: 20 MG, 3X/DAY
     Route: 048
     Dates: start: 201010
  5. SPIRONOLACTONE. [Concomitant]
     Active Substance: SPIRONOLACTONE
     Dosage: 25 MG, DAILY
  6. JANTOVEN [Suspect]
     Active Substance: WARFARIN SODIUM
     Indication: ANTICOAGULANT THERAPY
     Dosage: 2 MG FOR ONE DAY AND 1 MG THE OTHER DAYS, DAILY
     Dates: start: 2012

REACTIONS (2)
  - Nasopharyngitis [Unknown]
  - Pneumonia [Unknown]

NARRATIVE: CASE EVENT DATE: 201502
